FAERS Safety Report 8282319-X (Version None)
Quarter: 2012Q2

REPORT INFORMATION
  Report Type: 
  Country: None (occurrence: None)
  Receive Date: 20120413
  Receipt Date: 20120413
  Transmission Date: 20120825
  Serious: Yes (Other)
  Sender: FDA-Public Use
  Company Number: None

PATIENT
  Age: 46 Year
  Sex: Female
  Weight: 61.234 kg

DRUGS (2)
  1. VALACYCLOVIR [Concomitant]
  2. VALACYCLOVIR [Suspect]
     Indication: HERPES ZOSTER
     Dosage: 1MG 3X PER DAY
     Route: 048
     Dates: start: 20120402, end: 20120412

REACTIONS (6)
  - HYPERHIDROSIS [None]
  - HEADACHE [None]
  - ASTHENIA [None]
  - DEPRESSION [None]
  - DIZZINESS [None]
  - HEART RATE INCREASED [None]
